FAERS Safety Report 10932575 (Version 1)
Quarter: 2015Q1

REPORT INFORMATION
  Report Type: Spontaneous
  Country: US (occurrence: None)
  Receive Date: 20150319
  Receipt Date: 20150319
  Transmission Date: 20150721
  Serious: Yes (Hospitalization)
  Sender: FDA-Public Use
  Company Number: None

PATIENT
  Age: 52 Year
  Sex: Male
  Weight: 104 kg

DRUGS (4)
  1. JANUMET GENERIC [Suspect]
     Active Substance: METFORMIN HYDROCHLORIDE\SITAGLIPTIN PHOSPHATE
     Dosage: 1
     Route: 048
  2. LOTENSIN [Concomitant]
     Active Substance: BENAZEPRIL HYDROCHLORIDE
  3. AMLODIPINE [Concomitant]
     Active Substance: AMLODIPINE BESYLATE
  4. PRAVACHOL [Concomitant]
     Active Substance: PRAVASTATIN SODIUM

REACTIONS (1)
  - Pancreatitis [None]

NARRATIVE: CASE EVENT DATE: 20150316
